FAERS Safety Report 9301000 (Version 1)
Quarter: 2013Q2

REPORT INFORMATION
  Report Type: Spontaneous
  Country: US (occurrence: US)
  Receive Date: 20130521
  Receipt Date: 20130521
  Transmission Date: 20140414
  Serious: No
  Sender: FDA-Public Use
  Company Number: US-PFIZER INC-2013153902

PATIENT
  Sex: 0

DRUGS (2)
  1. LYRICA [Suspect]
     Dosage: UNK
  2. VOLTAREN [Suspect]
     Dosage: UNK

REACTIONS (1)
  - Platelet count decreased [Unknown]
